FAERS Safety Report 23981595 (Version 2)
Quarter: 2024Q3

REPORT INFORMATION
  Report Type: Spontaneous
  Country: FR (occurrence: FR)
  Receive Date: 20240617
  Receipt Date: 20240701
  Transmission Date: 20241017
  Serious: Yes (Other)
  Sender: MYLAN
  Company Number: None

PATIENT
  Age: 36 Year
  Sex: Female

DRUGS (5)
  1. MODAFINIL [Suspect]
     Active Substance: MODAFINIL
     Indication: Product used for unknown indication
     Dosage: 600 MILLIGRAM/DAY (EITHER ALONE OR IN COMBINATION WITH QUASYM, CONCERTA, MODAFINIL)
     Route: 048
     Dates: start: 2024, end: 202405
  2. METHYLPHENIDATE HYDROCHLORIDE [Suspect]
     Active Substance: METHYLPHENIDATE HYDROCHLORIDE
     Indication: Product used for unknown indication
     Dosage: 600 MILLIGRAM/DAY (EITHER ALONE OR IN COMBINATION WITH QUASYM, CONCERTA, MODAFINIL)
     Route: 048
     Dates: start: 202302, end: 20240516
  3. CONCERTA [Suspect]
     Active Substance: METHYLPHENIDATE HYDROCHLORIDE
     Indication: Product used for unknown indication
     Dosage: 600 MILLIGRAM/DAY (EITHER ALONE OR IN COMBINATION WITH QUASYM, CONCERTA, MODAFINIL)
     Route: 048
     Dates: start: 2024, end: 202405
  4. OXAZEPAM [Suspect]
     Active Substance: OXAZEPAM
     Indication: Product used for unknown indication
     Dosage: 150 MILLIGRAM, QD
     Route: 048
     Dates: start: 2024, end: 202405
  5. BROMAZEPAM [Suspect]
     Active Substance: BROMAZEPAM
     Indication: Product used for unknown indication
     Dosage: 36 MILLIGRAM, QD
     Route: 048
     Dates: start: 2024

REACTIONS (1)
  - Drug use disorder [Recovering/Resolving]

NARRATIVE: CASE EVENT DATE: 20240101
